FAERS Safety Report 8842325 (Version 2)
Quarter: 2012Q4

REPORT INFORMATION
  Report Type: 
  Country: CO (occurrence: CO)
  Receive Date: 20121016
  Receipt Date: 20121113
  Transmission Date: 20130627
  Serious: Yes (Other)
  Sender: FDA-Public Use
  Company Number: CO-009507513-1210COL006273

PATIENT
  Age: 62 Year
  Sex: Female

DRUGS (3)
  1. VICTRELIS [Suspect]
     Indication: HEPATITIS C
     Dosage: UNK
     Route: 048
     Dates: start: 20120622
  2. PEGASYS [Suspect]
     Indication: HEPATITIS C
     Dosage: 180 Microgram, UNK
     Route: 058
     Dates: start: 20120622
  3. COPEGUS [Suspect]
     Indication: HEPATITIS C
     Dosage: 1000 Microgram, UNK
     Route: 048
     Dates: start: 20120622

REACTIONS (6)
  - Oedema [Recovered/Resolved]
  - Nail disorder [Recovered/Resolved]
  - Abdominal pain [Recovered/Resolved]
  - Abdominal pain [Recovered/Resolved]
  - Gingivitis [Recovered/Resolved]
  - Diarrhoea [Recovered/Resolved]
